FAERS Safety Report 21755329 (Version 1)
Quarter: 2022Q4

REPORT INFORMATION
  Report Type: Spontaneous
  Country: US (occurrence: None)
  Receive Date: 20221220
  Receipt Date: 20221220
  Transmission Date: 20230112
  Serious: No
  Sender: FDA-Public Use
  Company Number: US-SUPERNUS Pharmaceuticals, Inc.-SUP202208-002554

PATIENT
  Age: 53 Year
  Sex: Female
  Weight: 53.97 kg

DRUGS (13)
  1. TROKENDI XR [Suspect]
     Active Substance: TOPIRAMATE
     Indication: Migraine
     Dates: start: 20220719
  2. TROKENDI XR [Suspect]
     Active Substance: TOPIRAMATE
  3. TROKENDI XR [Suspect]
     Active Substance: TOPIRAMATE
  4. TROKENDI XR [Suspect]
     Active Substance: TOPIRAMATE
  5. ZYRTEC [Concomitant]
     Active Substance: CETIRIZINE HYDROCHLORIDE
     Dosage: 10MG
  6. LOSARTAN [Concomitant]
     Active Substance: LOSARTAN
     Dosage: 50MG
  7. ESCITALOPRAM [Concomitant]
     Active Substance: ESCITALOPRAM OXALATE
     Dosage: 200MG
  8. Brielo [Concomitant]
     Dosage: NOT PROVIDED
  9. DILTIAZEM HYDROCHLORIDE [Concomitant]
     Active Substance: DILTIAZEM HYDROCHLORIDE
     Dosage: 240MG
  10. PREDNISONE [Concomitant]
     Active Substance: PREDNISONE
     Dates: start: 20220804
  11. PREDNISONE [Concomitant]
     Active Substance: PREDNISONE
  12. PREDNISONE [Concomitant]
     Active Substance: PREDNISONE
  13. PREDNISONE [Concomitant]
     Active Substance: PREDNISONE

REACTIONS (8)
  - Pain in extremity [Unknown]
  - Muscle spasms [Unknown]
  - Confusional state [Unknown]
  - Dysarthria [Unknown]
  - Hand-eye coordination impaired [Unknown]
  - Back pain [Unknown]
  - Paraesthesia [Unknown]
  - Gait disturbance [Unknown]
